FAERS Safety Report 7780425-7 (Version None)
Quarter: 2011Q3

REPORT INFORMATION
  Report Type: 
  Country: None (occurrence: None)
  Receive Date: 20110927
  Receipt Date: 19981222
  Transmission Date: 20111222
  Serious: Yes (Other)
  Sender: FDA-Public Use
  Company Number: US-ROCHE-107131

PATIENT
  Sex: Female

DRUGS (2)
  1. PENICILLIN [Suspect]
     Indication: COUGH
     Route: 048
  2. BACTRIM [Suspect]
     Indication: COUGH
     Route: 048
     Dates: start: 19980101, end: 19980201

REACTIONS (2)
  - LIPODYSTROPHY ACQUIRED [None]
  - CACHEXIA [None]
